FAERS Safety Report 9286213 (Version 3)
Quarter: 2013Q4

REPORT INFORMATION
  Report Type: Spontaneous
  Country: US (occurrence: US)
  Receive Date: 20130513
  Receipt Date: 20131220
  Transmission Date: 20140711
  Serious: Yes (Hospitalization)
  Sender: FDA-Public Use
  Company Number: US-GLAXOSMITHKLINE-A1023122A

PATIENT
  Age: 39 Year
  Sex: Female
  Weight: 63 kg

DRUGS (2)
  1. FLOLAN [Suspect]
     Indication: PULMONARY ARTERIAL HYPERTENSION
     Dosage: 25NGKM CONTINUOUS
     Route: 042
     Dates: start: 20090606
  2. COUMADIN [Concomitant]

REACTIONS (3)
  - Clostridium difficile infection [Recovered/Resolved]
  - Investigation [Recovered/Resolved]
  - Device related infection [Recovered/Resolved]
